FAERS Safety Report 19471107 (Version 1)
Quarter: 2021Q2

REPORT INFORMATION
  Report Type: Spontaneous
  Country: JP (occurrence: JP)
  Receive Date: 20210629
  Receipt Date: 20210629
  Transmission Date: 20210717
  Serious: Yes (Hospitalization, Other)
  Sender: FDA-Public Use
  Company Number: JP-LUPIN PHARMACEUTICALS INC.-2021-10437

PATIENT
  Age: 73 Year
  Sex: Male

DRUGS (2)
  1. METRONIDAZOLE. [Suspect]
     Active Substance: METRONIDAZOLE
     Indication: ABDOMINAL ABSCESS
     Dosage: 500 MILLIGRAM, TID,THRICE DAILY FOR 1 MONTH. (TOTAL DOSE OF 45000MG)
     Route: 048
  2. LEVOFLOXACIN. [Concomitant]
     Active Substance: LEVOFLOXACIN
     Indication: ABDOMINAL ABSCESS
     Dosage: 500 MILLIGRAM, QD
     Route: 048

REACTIONS (1)
  - Cerebellar syndrome [Recovered/Resolved]
